FAERS Safety Report 5635248-1 (Version None)
Quarter: 2008Q1

REPORT INFORMATION
  Report Type: 
  Country: None (occurrence: None)
  Receive Date: 20080222
  Receipt Date: 20080218
  Transmission Date: 20080703
  Serious: Yes (Life-Threatening, Hospitalization)
  Sender: FDA-Public Use
  Company Number: DE-BOEHRINGER INGELHEIM GMBH, GERMANY-2007-DE-06414DE

PATIENT
  Sex: Male

DRUGS (7)
  1. AGGRENOX [Suspect]
     Indication: OPTIC NERVE INFARCTION
     Dates: start: 20050101
  2. LIPOTALON [Suspect]
     Indication: EPICONDYLITIS
     Dosage: MIXED WITH XYLOCAIN
     Dates: start: 20070813
  3. CORTISONE [Suspect]
     Indication: ARTERIAL OCCLUSIVE DISEASE
  4. NSAR [Suspect]
     Indication: BLINDNESS
  5. ALNA [Concomitant]
     Indication: BENIGN PROSTATIC HYPERPLASIA
  6. NEXIUM [Concomitant]
  7. ATACAND [Concomitant]

REACTIONS (5)
  - GASTROINTESTINAL HAEMORRHAGE [None]
  - HAEMOGLOBIN DECREASED [None]
  - IRON DEFICIENCY ANAEMIA [None]
  - MELAENA [None]
  - NAUSEA [None]
